FAERS Safety Report 22206894 (Version 1)
Quarter: 2023Q2

REPORT INFORMATION
  Report Type: Report from Study
  Country: BE (occurrence: BE)
  Receive Date: 20230413
  Receipt Date: 20230413
  Transmission Date: 20230721
  Serious: Yes (Other)
  Sender: FDA-Public Use
  Company Number: BE-ABBVIE-4726263

PATIENT
  Sex: Male

DRUGS (6)
  1. CARBIDOPA\LEVODOPA [Suspect]
     Active Substance: CARBIDOPA\LEVODOPA
     Indication: Parkinson^s disease
     Dosage: MD 10.0 ML CD 4.1 ML/HR (AM) CD 3.8 ML/HR (PM) ED 3.0 ML CND 3.0 ML REMAINED AT 16 HOURS
     Route: 050
     Dates: start: 20220613, end: 20220912
  2. CARBIDOPA\LEVODOPA [Suspect]
     Active Substance: CARBIDOPA\LEVODOPA
     Dosage: MD 10.0 ML CD 4.1 ML/HR (AM) CD 3.8 ML/HR (PM) ED 3.0 ML CND 3.0 ML REMAINED AT 16 HOURS
     Route: 050
     Dates: start: 20220912
  3. CARBIDOPA\LEVODOPA [Suspect]
     Active Substance: CARBIDOPA\LEVODOPA
     Dosage: REMAINED AT 16 HOURS
     Route: 050
     Dates: start: 20110627
  4. PRAMIPEXOLE [Concomitant]
     Active Substance: PRAMIPEXOLE
     Indication: Product used for unknown indication
     Dosage: 0.7, 1 UNKNOWN, ONCE IN THE MORNING
  5. PRAMIPEXOLE [Concomitant]
     Active Substance: PRAMIPEXOLE
     Indication: Product used for unknown indication
     Dosage: 3.15, 1 UNKNOWN, OD, ONCE IN THE EVENING
  6. STALEVO [Concomitant]
     Active Substance: CARBIDOPA\ENTACAPONE\LEVODOPA
     Indication: Product used for unknown indication
     Dosage: TIME INTERVAL: 0.11111111 DAYS: FORM STRENGTH 150 UNITS

REACTIONS (1)
  - Embedded device [Recovered/Resolved]
